FAERS Safety Report 9475763 (Version 1)
Quarter: 2013Q3

REPORT INFORMATION
  Report Type: Spontaneous
  Country: US (occurrence: US)
  Receive Date: 20130826
  Receipt Date: 20130826
  Transmission Date: 20140515
  Serious: No
  Sender: FDA-Public Use
  Company Number: US-PFIZER INC-2013243644

PATIENT
  Age: 45 Year
  Sex: Male
  Weight: 86.17 kg

DRUGS (1)
  1. CHANTIX [Suspect]
     Indication: SMOKING CESSATION THERAPY
     Dosage: UNK (HALF PILL), 2X/DAY

REACTIONS (3)
  - Irritability [Unknown]
  - Amnesia [Unknown]
  - Drug ineffective [Unknown]
